FAERS Safety Report 6664159-8 (Version None)
Quarter: 2010Q2

REPORT INFORMATION
  Report Type: 
  Country: None (occurrence: None)
  Receive Date: 20100401
  Receipt Date: 20100326
  Transmission Date: 20101027
  Serious: Yes (Other)
  Sender: FDA-Public Use
  Company Number: D0066013A

PATIENT
  Age: 58 Year
  Sex: Female

DRUGS (10)
  1. VIANI 50-250 DISKUS [Suspect]
     Dosage: 300MCG UNKNOWN
     Route: 055
  2. MORPHIN [Concomitant]
     Route: 048
  3. DOXY COMP [Concomitant]
     Route: 065
  4. ROXITHROMYCIN [Concomitant]
     Route: 065
  5. GODAMED [Concomitant]
     Route: 065
  6. DECORTIN [Concomitant]
     Dosage: 20MG UNKNOWN
     Route: 048
  7. BROMAZANIL [Concomitant]
     Route: 065
  8. TRAMAL LONG [Concomitant]
     Dosage: 100MG UNKNOWN
     Route: 048
  9. BENZODIAZEPINES [Concomitant]
     Route: 048
  10. UNKNOWN ANTIDEPRESSANT [Concomitant]
     Route: 048

REACTIONS (6)
  - BRONCHIAL OBSTRUCTION [None]
  - CHOKING [None]
  - COUGH [None]
  - DYSPNOEA [None]
  - PNEUMONIA [None]
  - PRODUCT QUALITY ISSUE [None]
